FAERS Safety Report 15979788 (Version 2)
Quarter: 2019Q1

REPORT INFORMATION
  Report Type: Report from Study
  Country: US (occurrence: US)
  Receive Date: 20190219
  Receipt Date: 20190312
  Transmission Date: 20190418
  Serious: Yes (Hospitalization, Other)
  Sender: FDA-Public Use
  Company Number: US-IONIS PHARMACEUTICALS, INC.-2019-420915CS5-003

PATIENT
  Age: 51 Year
  Sex: Female
  Weight: 63.5 kg

DRUGS (15)
  1. LIDOCAINE. [Concomitant]
     Active Substance: LIDOCAINE
     Indication: PAIN IN EXTREMITY
     Dosage: 5 %, PRN
     Route: 061
     Dates: start: 20180831, end: 20190206
  2. ARIPIPRAZOLE. [Concomitant]
     Active Substance: ARIPIPRAZOLE
     Indication: MAJOR DEPRESSION
     Dosage: 2 MG, QD
     Route: 048
     Dates: start: 20190114
  3. GABAPENTIN. [Concomitant]
     Active Substance: GABAPENTIN
     Indication: FAMILIAL AMYLOIDOSIS
     Dosage: 1200 MG, TID
     Route: 048
     Dates: start: 20190114
  4. CYANOCOBALAMIN. [Concomitant]
     Active Substance: CYANOCOBALAMIN
     Indication: VITAMIN B12 DEFICIENCY
     Dosage: 1,000 MCG/ML, 1/MONTH
     Route: 030
     Dates: start: 20180831
  5. FLUOXETINE [Concomitant]
     Active Substance: FLUOXETINE HYDROCHLORIDE
     Indication: MAJOR DEPRESSION
     Dosage: 20 MG, QD
     Route: 048
     Dates: start: 20181211
  6. INOTERSEN [Suspect]
     Active Substance: INOTERSEN SODIUM
     Indication: AMYLOIDOSIS
     Dosage: 284 MG, 1/WEEK
     Route: 058
     Dates: start: 20180423, end: 20190128
  7. ADDERALL [Concomitant]
     Active Substance: AMPHETAMINE ASPARTATE\AMPHETAMINE SULFATE\DEXTROAMPHETAMINE SACCHARATE\DEXTROAMPHETAMINE SULFATE
     Indication: ATTENTION DEFICIT/HYPERACTIVITY DISORDER
     Dosage: 40 MG, BID
     Route: 048
     Dates: start: 20190114
  8. DIFLUNISAL. [Concomitant]
     Active Substance: DIFLUNISAL
     Indication: PRODUCT USED FOR UNKNOWN INDICATION
     Dosage: 500 MG, QD
     Route: 048
     Dates: start: 20180507, end: 20190206
  9. FLUOXETINE [Concomitant]
     Active Substance: FLUOXETINE HYDROCHLORIDE
     Indication: ANXIETY DISORDER
  10. FLUOXETINE [Concomitant]
     Active Substance: FLUOXETINE HYDROCHLORIDE
     Indication: ANXIETY DISORDER
  11. FLUOXETINE [Concomitant]
     Active Substance: FLUOXETINE HYDROCHLORIDE
     Indication: MAJOR DEPRESSION
     Dosage: 40 MG, QD
     Route: 048
     Dates: start: 20181211
  12. GABAPENTIN. [Concomitant]
     Active Substance: GABAPENTIN
     Indication: NEUROPATHY PERIPHERAL
  13. ROXICODONE [Concomitant]
     Active Substance: OXYCODONE HYDROCHLORIDE
     Indication: PAIN
     Dosage: 20 MG, Q 4 HR AS NEEDED
     Route: 048
     Dates: start: 20190127
  14. BENZOCAINE. [Concomitant]
     Active Substance: BENZOCAINE
     Indication: PRODUCT USED FOR UNKNOWN INDICATION
     Dosage: 1 APPLICATION, BID
     Route: 061
     Dates: start: 20180403, end: 20190206
  15. DOXYCYCLINE MONOHYDRATE [Concomitant]
     Active Substance: DOXYCYCLINE
     Indication: PRODUCT USED FOR UNKNOWN INDICATION
     Dosage: 100 MG, BID
     Route: 048
     Dates: start: 20180507, end: 20190206

REACTIONS (2)
  - Thrombocytopenia [Recovering/Resolving]
  - Liver function test increased [Recovering/Resolving]

NARRATIVE: CASE EVENT DATE: 20190204
